FAERS Safety Report 7280417-0 (Version None)
Quarter: 2011Q1

REPORT INFORMATION
  Report Type: 
  Country: None (occurrence: None)
  Receive Date: 20110208
  Receipt Date: 20110126
  Transmission Date: 20110831
  Serious: Yes (Other)
  Sender: FDA-Public Use
  Company Number: FR-PFIZER INC-2011013861

PATIENT
  Age: 79 Year
  Sex: Male

DRUGS (14)
  1. REPAGLINIDE [Concomitant]
     Dosage: UNKNOWN
  2. DARBEPOETIN ALFA [Concomitant]
     Dosage: UNKNOWN
  3. FUROSEMIDE [Concomitant]
     Dosage: UNKNOWN
  4. ALLOPURINOL [Concomitant]
     Dosage: UNKNOWN
  5. RABEPRAZOLE [Concomitant]
     Dosage: UNKNOWN
  6. TAHOR [Suspect]
     Dosage: UNK
  7. LOSARTAN [Concomitant]
     Dosage: UNKNOWN
  8. ATENOLOL [Concomitant]
     Dosage: UNKNOWN
  9. SIROLIMUS [Interacting]
     Indication: BASAL CELL CARCINOMA
     Dosage: UNK
     Dates: start: 20070501, end: 20070801
  10. SIROLIMUS [Interacting]
     Indication: RENAL TRANSPLANT
  11. AMILORIDE [Concomitant]
     Dosage: UNKNOWN
  12. TAMSULOSIN [Concomitant]
     Dosage: UNKNOWN
  13. NIFEDIPINE [Concomitant]
     Dosage: UNKNOWN
  14. ASPIRIN [Concomitant]
     Dosage: UNKNOWN

REACTIONS (2)
  - PNEUMONIA [None]
  - DRUG INTERACTION [None]
